FAERS Safety Report 5880033-9 (Version None)
Quarter: 2008Q3

REPORT INFORMATION
  Report Type: 
  Country: None (occurrence: None)
  Receive Date: 20080912
  Receipt Date: 20080902
  Transmission Date: 20090109
  Serious: Yes (Other)
  Sender: FDA-Public Use
  Company Number: AU-SANOFI-SYNTHELABO-A01200810839

PATIENT
  Sex: Female

DRUGS (2)
  1. PLAVIX [Suspect]
     Indication: STENT PLACEMENT
     Route: 048
     Dates: start: 20080617
  2. PLAVIX [Suspect]
     Indication: ANGINA UNSTABLE
     Route: 048
     Dates: start: 20080617

REACTIONS (2)
  - ILIAC ARTERY STENOSIS [None]
  - PAIN IN EXTREMITY [None]
